FAERS Safety Report 11679658 (Version 3)
Quarter: 2015Q4

REPORT INFORMATION
  Report Type: Spontaneous
  Country: US (occurrence: US)
  Receive Date: 20151027
  Receipt Date: 20151110
  Transmission Date: 20160304
  Serious: No
  Sender: FDA-Public Use
  Company Number: US-ELI_LILLY_AND_COMPANY-US201001001397

PATIENT
  Age: 82 Year
  Sex: Female
  Weight: 67 kg

DRUGS (5)
  1. FORTEO [Suspect]
     Active Substance: TERIPARATIDE
     Indication: OSTEOPOROSIS
     Dosage: 20 UG, OTHER
     Route: 065
     Dates: start: 200909, end: 200909
  2. FORTEO [Suspect]
     Active Substance: TERIPARATIDE
     Dosage: 20 UG, DAILY (1/D)
  3. FORTEO [Suspect]
     Active Substance: TERIPARATIDE
     Dosage: 20 UG, DAILY (1/D)
     Route: 065
     Dates: start: 20100118, end: 20100421
  4. FORTEO [Suspect]
     Active Substance: TERIPARATIDE
     Dosage: 20 UG, DAILY (1/D)
  5. COUMADIN [Concomitant]
     Active Substance: WARFARIN SODIUM

REACTIONS (13)
  - Palmar erythema [Not Recovered/Not Resolved]
  - Incorrect dose administered [Recovered/Resolved]
  - Cough [Unknown]
  - Asthenia [Unknown]
  - Hypoaesthesia [Unknown]
  - Anxiety [Recovered/Resolved]
  - Flushing [Not Recovered/Not Resolved]
  - Paraesthesia [Not Recovered/Not Resolved]
  - Limb discomfort [Not Recovered/Not Resolved]
  - Injection site erythema [Unknown]
  - Carpal tunnel syndrome [Not Recovered/Not Resolved]
  - Bloody discharge [Unknown]
  - Feeling hot [Not Recovered/Not Resolved]

NARRATIVE: CASE EVENT DATE: 200909
